FAERS Safety Report 23702249 (Version 1)
Quarter: 2024Q2

REPORT INFORMATION
  Report Type: Spontaneous
  Country: US (occurrence: US)
  Receive Date: 20240403
  Receipt Date: 20240403
  Transmission Date: 20240716
  Serious: No
  Sender: FDA-Public Use
  Company Number: US-SANOFI-01993027

PATIENT
  Age: 81 Year
  Sex: Female

DRUGS (2)
  1. TOUJEO MAX [Suspect]
     Active Substance: INSULIN GLARGINE
     Indication: Type 2 diabetes mellitus
     Dosage: 30 IU, BID
  2. NOVOLOG [Concomitant]
     Active Substance: INSULIN ASPART
     Dosage: 15 IU, QD

REACTIONS (2)
  - Off label use [Unknown]
  - Product dispensing error [Unknown]
